FAERS Safety Report 19854822 (Version 1)
Quarter: 2021Q3

REPORT INFORMATION
  Report Type: Spontaneous
  Country: US (occurrence: US)
  Receive Date: 20210920
  Receipt Date: 20210920
  Transmission Date: 20211014
  Serious: No
  Sender: FDA-Public Use
  Company Number: US-AUROBINDO-AUR-APL-2021-003656

PATIENT

DRUGS (1)
  1. ALPRAZOLAM TABLETS USP 0.5MG [Suspect]
     Active Substance: ALPRAZOLAM
     Indication: ANXIETY
     Dosage: UNK
     Route: 065

REACTIONS (8)
  - Memory impairment [Unknown]
  - Nausea [Unknown]
  - Bradyphrenia [Unknown]
  - Fatigue [Unknown]
  - Hypersomnia [Unknown]
  - Product quality issue [Unknown]
  - Product substitution issue [Unknown]
  - Drug ineffective [Unknown]
